FAERS Safety Report 17783107 (Version 3)
Quarter: 2020Q2

REPORT INFORMATION
  Report Type: Report from Study
  Country: None (occurrence: US)
  Receive Date: 20200514
  Receipt Date: 20200630
  Transmission Date: 20200714
  Serious: No
  Sender: FDA-Public Use
  Company Number: US-BIOVITRUM-2020US0583

PATIENT
  Sex: Female

DRUGS (22)
  1. ASPIRIN. [Concomitant]
     Active Substance: ASPIRIN
  2. SPECTAZOLE [Concomitant]
     Active Substance: ECONAZOLE NITRATE
  3. TRAMADOL. [Concomitant]
     Active Substance: TRAMADOL
  4. ATORVASTATIN [Concomitant]
     Active Substance: ATORVASTATIN
  5. CYCLOBENZAPRINE. [Concomitant]
     Active Substance: CYCLOBENZAPRINE
  6. MONODOX [Concomitant]
     Active Substance: DOXYCYCLINE
  7. FOLVITE [Concomitant]
     Active Substance: FOLIC ACID
  8. PREDNISONE. [Concomitant]
     Active Substance: PREDNISONE
  9. MAGNESIUM OXIDE. [Concomitant]
     Active Substance: MAGNESIUM OXIDE
  10. VITAMIN B12 [Concomitant]
     Active Substance: CYANOCOBALAMIN
  11. ACETAMINOPHEN. [Concomitant]
     Active Substance: ACETAMINOPHEN
  12. AMITRIPTYLINE [Concomitant]
     Active Substance: AMITRIPTYLINE
  13. BRIMONIDINE [Concomitant]
     Active Substance: BRIMONIDINE TARTRATE
  14. LISINOPRIL. [Concomitant]
     Active Substance: LISINOPRIL
  15. METHOTREXATE. [Concomitant]
     Active Substance: METHOTREXATE
  16. KINERET [Suspect]
     Active Substance: ANAKINRA
     Indication: PRODUCT USED FOR UNKNOWN INDICATION
     Route: 058
     Dates: start: 20200114
  17. LASIX [Concomitant]
     Active Substance: FUROSEMIDE
  18. NEURONTIN [Concomitant]
     Active Substance: GABAPENTIN
  19. NEBIVOLOL. [Concomitant]
     Active Substance: NEBIVOLOL
  20. KINERET [Suspect]
     Active Substance: ANAKINRA
  21. VITAMIN D3 [Concomitant]
     Active Substance: CHOLECALCIFEROL
  22. MELOXICAM. [Concomitant]
     Active Substance: MELOXICAM

REACTIONS (7)
  - Influenza like illness [Unknown]
  - Herpes zoster [Unknown]
  - Drug ineffective [Unknown]
  - Headache [Recovering/Resolving]
  - Urticaria [Recovering/Resolving]
  - Pyrexia [Recovering/Resolving]
  - Nausea [Unknown]
